FAERS Safety Report 15995206 (Version 4)
Quarter: 2019Q2

REPORT INFORMATION
  Report Type: Report from Study
  Country: None (occurrence: US)
  Receive Date: 20190222
  Receipt Date: 20190418
  Transmission Date: 20190711
  Serious: Yes (Hospitalization, Other)
  Sender: FDA-Public Use
  Company Number: US-ABBVIE-19K-163-2672119-00

PATIENT
  Age: 66 Year
  Sex: Female
  Weight: 59.47 kg

DRUGS (3)
  1. HUMIRA [Suspect]
     Active Substance: ADALIMUMAB
     Indication: RHEUMATOID ARTHRITIS
     Route: 058
     Dates: start: 20181120
  2. HUMIRA [Suspect]
     Active Substance: ADALIMUMAB
     Route: 058
     Dates: start: 201901
  3. HEPARIN [Suspect]
     Active Substance: HEPARIN SODIUM
     Indication: MYOCARDIAL INFARCTION
     Route: 065
     Dates: start: 201902, end: 201902

REACTIONS (12)
  - Coronary artery occlusion [Recovered/Resolved]
  - Pneumonia [Unknown]
  - Incorrect dose administered [Unknown]
  - Myocardial infarction [Recovering/Resolving]
  - Haematochezia [Unknown]
  - Accidental exposure to product [Unknown]
  - Device issue [Unknown]
  - Cerebrovascular accident [Unknown]
  - Wrong technique in product usage process [Unknown]
  - Accidental exposure to product [Recovered/Resolved]
  - Injection site haemorrhage [Unknown]
  - Syncope [Not Recovered/Not Resolved]

NARRATIVE: CASE EVENT DATE: 2019
